FAERS Safety Report 15266416 (Version 2)
Quarter: 2018Q3

REPORT INFORMATION
  Report Type: Spontaneous
  Country: JP (occurrence: JP)
  Receive Date: 20180810
  Receipt Date: 20180914
  Transmission Date: 20181010
  Serious: Yes (Other)
  Sender: FDA-Public Use
  Company Number: JP-ABBVIE-18K-087-2448523-00

PATIENT
  Age: 80 Year
  Sex: Female

DRUGS (1)
  1. MAVIRET [Suspect]
     Active Substance: GLECAPREVIR\PIBRENTASVIR
     Indication: HEPATIC CIRRHOSIS
     Route: 048
     Dates: start: 201807, end: 201808

REACTIONS (4)
  - Pyrexia [Unknown]
  - Melaena [Unknown]
  - Alanine aminotransferase increased [Unknown]
  - White blood cell count increased [Unknown]

NARRATIVE: CASE EVENT DATE: 201808
